FAERS Safety Report 17767316 (Version 1)
Quarter: 2020Q2

REPORT INFORMATION
  Report Type: Spontaneous
  Country: US (occurrence: US)
  Receive Date: 20200511
  Receipt Date: 20200511
  Transmission Date: 20200714
  Serious: Yes (Other)
  Sender: FDA-Public Use
  Company Number: US-PURDUE PHARMA-GBR-2020-0076640

PATIENT

DRUGS (2)
  1. NON-PMN MORPHINE SULFATE [Suspect]
     Active Substance: MORPHINE SULFATE
     Indication: PRODUCT USED FOR UNKNOWN INDICATION
     Dosage: UNK
     Route: 037
  2. BUPIVACAINE. [Suspect]
     Active Substance: BUPIVACAINE
     Indication: SPINAL ANAESTHESIA
     Dosage: UNK
     Route: 037

REACTIONS (7)
  - Peripheral sensory neuropathy [Unknown]
  - Mental disorder [Unknown]
  - Status epilepticus [Unknown]
  - Hypotension [Unknown]
  - Seizure [Unknown]
  - Paralysis [Unknown]
  - Neurotoxicity [Unknown]
